FAERS Safety Report 22144584 (Version 3)
Quarter: 2023Q4

REPORT INFORMATION
  Report Type: Spontaneous
  Country: US (occurrence: US)
  Receive Date: 20230328
  Receipt Date: 20231102
  Transmission Date: 20240110
  Serious: Yes (Other)
  Sender: FDA-Public Use
  Company Number: US-JNJFOC-20230358700

PATIENT
  Sex: Male

DRUGS (6)
  1. TYLENOL REGULAR STRENGTH [Suspect]
     Active Substance: ACETAMINOPHEN
     Indication: Headache
     Dosage: BOTTLE OR PACKAGE SIZE (I.E NUMBER OF PILLS) WAS BOTTLE, UNKNOWN NUMBER OF TABLETS, 2-3 TIMES PER WE
     Route: 064
     Dates: start: 201403, end: 201406
  2. DIETARY SUPPLEMENT [Concomitant]
     Active Substance: DIETARY SUPPLEMENT
     Indication: Hypothyroidism
     Route: 065
     Dates: start: 201401, end: 201409
  3. DIETARY SUPPLEMENT [Concomitant]
     Active Substance: DIETARY SUPPLEMENT
     Indication: Pregnancy
  4. SYNTHROID [Concomitant]
     Active Substance: LEVOTHYROXINE SODIUM
     Indication: Autoimmune thyroiditis
     Route: 064
     Dates: start: 201401, end: 201409
  5. NESTABS [Concomitant]
     Indication: Pregnancy
     Dosage: AS VITAMIN SUPPLEMENT
     Route: 064
     Dates: start: 201401, end: 201409
  6. FERROUS SULFATE [Concomitant]
     Active Substance: FERROUS SULFATE
     Indication: Anaemia
     Dosage: AS VITAMIN SUPPLEMENTS
     Route: 064
     Dates: start: 201401, end: 201409

REACTIONS (2)
  - Autism spectrum disorder [Unknown]
  - Foetal exposure during pregnancy [Unknown]

NARRATIVE: CASE EVENT DATE: 20140101
